FAERS Safety Report 4325273-5 (Version None)
Quarter: 2004Q1

REPORT INFORMATION
  Report Type: 
  Country: None (occurrence: None)
  Receive Date: 20040324
  Receipt Date: 20040304
  Transmission Date: 20041129
  Serious: Yes (Death, Other)
  Sender: FDA-Public Use
  Company Number: JP_040202582

PATIENT
  Age: 63 Year
  Sex: Male
  Weight: 61 kg

DRUGS (8)
  1. VANCOMYCIN [Suspect]
     Indication: PNEUMONIA STAPHYLOCOCCAL
     Dosage: 1500 MG DAY
     Dates: start: 20040117, end: 20040125
  2. URUSOTORAN (TRICHLORMETHIAZIDE) [Concomitant]
  3. CABERGOLINE [Concomitant]
  4. ALLOID (SODIUM ALGINATE) [Concomitant]
  5. MAALOX [Concomitant]
  6. LANSOPRAZOLE [Concomitant]
  7. KAYWAN (PHYTOMENADIONE) [Concomitant]
  8. BACTROBAN (MUPIROCIN) [Concomitant]

REACTIONS (5)
  - ACUTE RESPIRATORY DISTRESS SYNDROME [None]
  - CARDIAC FAILURE CONGESTIVE [None]
  - HAEMODIALYSIS [None]
  - RENAL IMPAIRMENT [None]
  - URINE OUTPUT DECREASED [None]
